FAERS Safety Report 4686214-4 (Version None)
Quarter: 2005Q2

REPORT INFORMATION
  Report Type: 
  Country: None (occurrence: None)
  Receive Date: 20050607
  Receipt Date: 20050525
  Transmission Date: 20051028
  Serious: Yes (Other)
  Sender: FDA-Public Use
  Company Number: 2005076530

PATIENT
  Sex: Female

DRUGS (3)
  1. ZITHROMAX [Suspect]
     Indication: ILL-DEFINED DISORDER
     Dosage: ORAL
     Route: 048
     Dates: start: 20050501, end: 20050501
  2. UNSPECIFIED TOPICAL MEDICATION (ALL OTHER THERAPEUTIC PRODUCT) [Concomitant]
  3. ZYRTEC [Concomitant]

REACTIONS (2)
  - DRUG HYPERSENSITIVITY [None]
  - WHEEZING [None]
